FAERS Safety Report 11365361 (Version 1)
Quarter: 2015Q3

REPORT INFORMATION
  Report Type: Spontaneous
  Country: US (occurrence: US)
  Receive Date: 20150811
  Receipt Date: 20150811
  Transmission Date: 20151125
  Serious: No
  Sender: FDA-Public Use
  Company Number: US-GLAXOSMITHKLINE-US2015114152

PATIENT
  Age: 53 Year
  Sex: Female

DRUGS (1)
  1. EQUATE NICOTINE [Suspect]
     Active Substance: NICOTINE
     Indication: SMOKING CESSATION THERAPY
     Dosage: 14 MG, UNK
     Dates: start: 20150804, end: 20150804

REACTIONS (3)
  - Nicotine dependence [Not Recovered/Not Resolved]
  - Drug ineffective [Unknown]
  - Expired product administered [Unknown]
